FAERS Safety Report 7460427-0 (Version None)
Quarter: 2011Q2

REPORT INFORMATION
  Report Type: 
  Country: None (occurrence: None)
  Receive Date: 20110505
  Receipt Date: 20110421
  Transmission Date: 20111010
  Serious: Yes (Other)
  Sender: FDA-Public Use
  Company Number: B0715830A

PATIENT
  Sex: Male

DRUGS (3)
  1. SERETIDE DISKUS [Suspect]
     Route: 065
     Dates: start: 20070101, end: 20110421
  2. VENTOLIN [Concomitant]
     Route: 065
  3. STEROID (UNSPECIFIED) [Concomitant]
     Route: 048

REACTIONS (2)
  - CARDIAC FIBRILLATION [None]
  - CARDIAC FLUTTER [None]
